FAERS Safety Report 7534360-X (Version None)
Quarter: 2011Q2

REPORT INFORMATION
  Report Type: 
  Country: None (occurrence: None)
  Receive Date: 20110608
  Receipt Date: 20110512
  Transmission Date: 20111010
  Serious: No
  Sender: FDA-Public Use
  Company Number: US-AMGEN-USASP2011024742

PATIENT
  Age: 78 Year
  Sex: Female

DRUGS (3)
  1. MUSCLE RELAXANTS [Concomitant]
  2. CALCIUM WITH VITAMIN D             /00944201/ [Concomitant]
  3. PROLIA [Suspect]
     Indication: OSTEOPOROSIS POSTMENOPAUSAL
     Dosage: 60 MG, Q6MO
     Dates: start: 20101104

REACTIONS (1)
  - HERPES ZOSTER [None]
